FAERS Safety Report 13586748 (Version 3)
Quarter: 2017Q3

REPORT INFORMATION
  Report Type: Spontaneous
  Country: DE (occurrence: DE)
  Receive Date: 20170526
  Receipt Date: 20170705
  Transmission Date: 20171127
  Serious: Yes (Other)
  Sender: FDA-Public Use
  Company Number: DE-PFIZER INC-2017226284

PATIENT
  Age: 66 Year
  Sex: Female

DRUGS (11)
  1. FOSTER NEXTHALER [Concomitant]
     Indication: ASTHMA
     Dosage: 2-0-2 PUFFS
     Route: 055
  2. BERODUAL [Concomitant]
     Active Substance: FENOTEROL HYDROBROMIDE\IPRATROPIUM BROMIDE
     Indication: ASTHMA
     Dosage: UNK, AS NEEDED
  3. AVAMYS [Concomitant]
     Active Substance: FLUTICASONE FUROATE
     Indication: ASTHMA
     Dosage: 1-0-0-0, AS NEEDED
     Route: 055
  4. ACC [Concomitant]
     Active Substance: ACETYLCYSTEINE
     Dosage: 1-0-1
  5. TOREM [Concomitant]
     Active Substance: TORSEMIDE
     Dosage: 1-1/2-0
  6. SPIRIVA [Concomitant]
     Active Substance: TIOTROPIUM BROMIDE MONOHYDRATE
     Indication: ASTHMA
     Dosage: 18 UG, 1-0-0
  7. XALKORI [Suspect]
     Active Substance: CRIZOTINIB
     Indication: NON-SMALL CELL LUNG CANCER
     Dosage: 250 MG, 2X
     Route: 048
     Dates: start: 20130614
  8. TROMCARDIN [Concomitant]
     Active Substance: MAGNESIUM ASPARTATE\POTASSIUM ASPARTATE
     Dosage: 2-0-1
  9. CALCIUM [Concomitant]
     Active Substance: CALCIUM
     Dosage: 1-0-1-0
  10. XALKORI [Suspect]
     Active Substance: CRIZOTINIB
     Dosage: 250 MG, 1X
     Route: 048
     Dates: start: 20140724
  11. XALKORI [Suspect]
     Active Substance: CRIZOTINIB
     Dosage: 200 MG, 2X
     Route: 048
     Dates: start: 20140730

REACTIONS (11)
  - Joint swelling [Unknown]
  - Erythema [Recovering/Resolving]
  - Feeling hot [Recovering/Resolving]
  - Joint swelling [Unknown]
  - Infection [Recovered/Resolved]
  - Cystitis [Not Recovered/Not Resolved]
  - Pain in extremity [Not Recovered/Not Resolved]
  - Joint swelling [Unknown]
  - Paraneoplastic syndrome [Unknown]
  - Oedema [Unknown]
  - Peripheral swelling [Not Recovered/Not Resolved]

NARRATIVE: CASE EVENT DATE: 2014
